FAERS Safety Report 7374585-X (Version None)
Quarter: 2011Q1

REPORT INFORMATION
  Report Type: 
  Country: None (occurrence: None)
  Receive Date: 20110325
  Receipt Date: 20100408
  Transmission Date: 20110831
  Serious: No
  Sender: FDA-Public Use
  Company Number: US-MYLANLABS-2010S1006028

PATIENT
  Age: 34 Year
  Sex: Female

DRUGS (6)
  1. FENTANYL-100 [Suspect]
     Route: 062
     Dates: start: 20090101, end: 20100401
  2. FENTANYL-100 [Suspect]
     Route: 062
     Dates: start: 20100401, end: 20100407
  3. FENTANYL-100 [Suspect]
     Indication: PAIN
     Route: 062
     Dates: start: 20090101, end: 20100401
  4. FENTANYL-100 [Suspect]
     Route: 062
     Dates: start: 20100407
  5. TRAMADOL HCL [Concomitant]
  6. ARTHROTEC [Concomitant]

REACTIONS (5)
  - PAIN [None]
  - VOMITING [None]
  - DRUG WITHDRAWAL SYNDROME [None]
  - DRUG INEFFECTIVE [None]
  - DRUG ADMINISTRATION ERROR [None]
